FAERS Safety Report 11999700 (Version 3)
Quarter: 2016Q1

REPORT INFORMATION
  Report Type: Report from Study
  Country: US (occurrence: US)
  Receive Date: 20160204
  Receipt Date: 20160321
  Transmission Date: 20160526
  Serious: No
  Sender: FDA-Public Use
  Company Number: US-AMGEN-USASL2016011655

PATIENT
  Age: 62 Year
  Sex: Female

DRUGS (1)
  1. ENBREL [Suspect]
     Active Substance: ETANERCEPT
     Indication: PSORIATIC ARTHROPATHY
     Dosage: 50 MG, WEEKLY
     Route: 065
     Dates: start: 201601

REACTIONS (5)
  - Injection site pain [Unknown]
  - Injection site erythema [Recovered/Resolved]
  - Injection site pruritus [Recovering/Resolving]
  - Injection site bruising [Unknown]
  - Injection site urticaria [Recovering/Resolving]

NARRATIVE: CASE EVENT DATE: 2016
